FAERS Safety Report 23417026 (Version 2)
Quarter: 2024Q1

REPORT INFORMATION
  Report Type: Report from Study
  Country: CN (occurrence: CN)
  Receive Date: 20240118
  Receipt Date: 20240118
  Transmission Date: 20240409
  Serious: Yes (Death, Hospitalization, Other)
  Sender: FDA-Public Use
  Company Number: CN-PFIZER INC-202400011145

PATIENT
  Age: 37 Month
  Sex: Male

DRUGS (8)
  1. METHYLPREDNISOLONE SODIUM SUCCINATE [Suspect]
     Active Substance: METHYLPREDNISOLONE SODIUM SUCCINATE
     Indication: Drug reaction with eosinophilia and systemic symptoms
     Dosage: 2 MG/KG, DAILY
  2. METHYLPREDNISOLONE SODIUM SUCCINATE [Suspect]
     Active Substance: METHYLPREDNISOLONE SODIUM SUCCINATE
     Indication: Haemophagocytic lymphohistiocytosis
     Dosage: 10-20 MG /(KG.D) SHOCK-DOSE FOR 3-5 DAYS
  3. HUMAN IMMUNOGLOBULIN G [Suspect]
     Active Substance: HUMAN IMMUNOGLOBULIN G
     Indication: Drug reaction with eosinophilia and systemic symptoms
     Dosage: UNK (HIGH DOSE)
     Route: 042
  4. HUMAN IMMUNOGLOBULIN G [Suspect]
     Active Substance: HUMAN IMMUNOGLOBULIN G
     Indication: Haemophagocytic lymphohistiocytosis
  5. RUXOLITINIB [Suspect]
     Active Substance: RUXOLITINIB
     Indication: Drug reaction with eosinophilia and systemic symptoms
     Dosage: UNK
  6. RUXOLITINIB [Suspect]
     Active Substance: RUXOLITINIB
     Indication: Haemophagocytic lymphohistiocytosis
  7. CYCLOSPORINE [Suspect]
     Active Substance: CYCLOSPORINE
     Indication: Drug reaction with eosinophilia and systemic symptoms
     Dosage: UNK
     Route: 042
  8. CYCLOSPORINE [Suspect]
     Active Substance: CYCLOSPORINE
     Indication: Haemophagocytic lymphohistiocytosis

REACTIONS (4)
  - Drug ineffective [Fatal]
  - Respiratory failure [Fatal]
  - Cytomegalovirus infection [Fatal]
  - Drug dependence [Unknown]
